FAERS Safety Report 20743904 (Version 1)
Quarter: 2022Q2

REPORT INFORMATION
  Report Type: Spontaneous
  Country: GB (occurrence: GB)
  Receive Date: 20220425
  Receipt Date: 20220425
  Transmission Date: 20220721
  Serious: Yes (Hospitalization)
  Sender: FDA-Public Use
  Company Number: None

PATIENT
  Age: 68 Year
  Sex: Female
  Weight: 46.3 kg

DRUGS (3)
  1. CARBOPLATIN [Suspect]
     Active Substance: CARBOPLATIN
     Indication: Anal squamous cell carcinoma
     Dosage: UNK, CYCLIC (AUC 5 DAY ONE OF EACH 28-DAY CYCLE)
     Route: 042
  2. PACLITAXEL [Suspect]
     Active Substance: PACLITAXEL
     Indication: Anal squamous cell carcinoma
     Dosage: 80 MG/M2, CYCLIC (DAY ONE, EIGHT AND 15 OF EACH 28-DAY CYCLE)
     Route: 042
  3. RETIFANLIMAB [Suspect]
     Active Substance: RETIFANLIMAB
     Indication: Anal squamous cell carcinoma
     Dosage: 500 MG, CYCLIC (DAY ONE OF EACH 28 DAY CYCLE)
     Route: 042

REACTIONS (3)
  - Dizziness [Recovered/Resolved]
  - Fall [Recovered/Resolved]
  - Off label use [Unknown]

NARRATIVE: CASE EVENT DATE: 20220316
